FAERS Safety Report 4904786-9 (Version None)
Quarter: 2006Q1

REPORT INFORMATION
  Report Type: 
  Country: None (occurrence: None)
  Receive Date: 20060208
  Receipt Date: 20051004
  Transmission Date: 20060701
  Serious: No
  Sender: FDA-Public Use
  Company Number: US-GLAXOSMITHKLINE-A0576981A

PATIENT
  Age: 54 Year
  Sex: Female

DRUGS (5)
  1. PAROXETINE HCL [Suspect]
     Indication: CHRONIC FATIGUE SYNDROME
     Dosage: 20MG AT NIGHT
     Route: 048
  2. PAXIL CR [Suspect]
     Indication: FATIGUE
     Dosage: 25MG PER DAY
     Route: 048
  3. LEVOXYL [Concomitant]
  4. CYTOMEL [Concomitant]
  5. NORTRIPTYLINE HCL [Concomitant]

REACTIONS (3)
  - DRUG INEFFECTIVE [None]
  - MALAISE [None]
  - NERVOUSNESS [None]
